FAERS Safety Report 9338643 (Version 1)
Quarter: 2013Q2

REPORT INFORMATION
  Report Type: Report from Study
  Country: CA (occurrence: CA)
  Receive Date: 20130610
  Receipt Date: 20130610
  Transmission Date: 20140414
  Serious: Yes (Other)
  Sender: FDA-Public Use
  Company Number: CA-JNJFOC-20130603503

PATIENT
  Age: 64 Year
  Sex: Male
  Weight: 91 kg

DRUGS (6)
  1. REMICADE [Suspect]
     Indication: CROHN^S DISEASE
     Route: 042
  2. IMURAN [Concomitant]
     Route: 048
  3. FERROUS GLUCONATE [Concomitant]
     Route: 048
  4. MULTIVITAMINS [Concomitant]
     Dosage: 1 TABLET
     Route: 065
  5. VITAMIN D [Concomitant]
     Route: 048
  6. ASA [Concomitant]
     Route: 048

REACTIONS (1)
  - Cataract [Recovered/Resolved]
